FAERS Safety Report 8329764-1 (Version None)
Quarter: 2012Q2

REPORT INFORMATION
  Report Type: 
  Country: None (occurrence: None)
  Receive Date: 20120502
  Receipt Date: 20120426
  Transmission Date: 20120825
  Serious: Yes (Other)
  Sender: FDA-Public Use
  Company Number: JP-PFIZER INC-2012103985

PATIENT
  Sex: Female

DRUGS (1)
  1. NASANYL [Suspect]
     Indication: ENDOMETRIOSIS
     Dosage: UNK
     Route: 045

REACTIONS (1)
  - ENDOMETRIAL HYPERPLASIA [None]
